FAERS Safety Report 21597704 (Version 1)
Quarter: 2022Q4

REPORT INFORMATION
  Report Type: Report from Study
  Country: US (occurrence: US)
  Receive Date: 20221115
  Receipt Date: 20221115
  Transmission Date: 20230113
  Serious: No
  Sender: FDA-Public Use
  Company Number: US-ABBVIE-4199914

PATIENT
  Sex: Female

DRUGS (2)
  1. IMBRUVICA [Suspect]
     Active Substance: IBRUTINIB
     Indication: Acute lymphocytic leukaemia
     Route: 048
     Dates: start: 20210108
  2. LOTEPREDNOL [Concomitant]
     Active Substance: LOTEPREDNOL
     Indication: Lacrimation increased

REACTIONS (3)
  - Eye pruritus [Unknown]
  - Lacrimation increased [Unknown]
  - Seasonal allergy [Unknown]
